FAERS Safety Report 22178109 (Version 1)
Quarter: 2023Q2

REPORT INFORMATION
  Report Type: Spontaneous
  Country: US (occurrence: None)
  Receive Date: 20230405
  Receipt Date: 20230405
  Transmission Date: 20230722
  Serious: Yes (Death)
  Sender: FDA-Public Use
  Company Number: None

PATIENT
  Age: 68 Year
  Sex: Female
  Weight: 85.28 kg

DRUGS (16)
  1. CAPECITABINE [Suspect]
     Active Substance: CAPECITABINE
     Indication: Breast cancer female
     Dosage: FREQUENCY : TWICE A DAY;?
     Route: 048
  2. ASCORBIC ACID [Concomitant]
     Active Substance: ASCORBIC ACID
  3. CETIRIZINE [Concomitant]
     Active Substance: CETIRIZINE HYDROCHLORIDE
  4. COZAAR [Concomitant]
     Active Substance: LOSARTAN POTASSIUM
  5. Faslodex Intramuscular [Concomitant]
  6. GLIPIZIDE [Concomitant]
     Active Substance: GLIPIZIDE
  7. HYDROCHLOROTHIAZIDE [Concomitant]
     Active Substance: HYDROCHLOROTHIAZIDE
  8. KLONOPIN [Concomitant]
     Active Substance: CLONAZEPAM
  9. MAGNESIUM OXIDE [Concomitant]
     Active Substance: MAGNESIUM OXIDE
  10. PAROXETINE [Concomitant]
  11. PROCHLORPERAZINE [Concomitant]
     Active Substance: PROCHLORPERAZINE
  12. PROMETHAZINE [Concomitant]
  13. TRAMADOL [Concomitant]
  14. VITAMIN D [Concomitant]
  15. Aspirin [Concomitant]
  16. XGEVA [Concomitant]
     Active Substance: DENOSUMAB

REACTIONS (1)
  - Death [None]
